FAERS Safety Report 11339861 (Version 3)
Quarter: 2015Q3

REPORT INFORMATION
  Report Type: Report from Study
  Country: US (occurrence: US)
  Receive Date: 20150805
  Receipt Date: 20150826
  Transmission Date: 20151125
  Serious: No
  Sender: FDA-Public Use
  Company Number: US-AMGEN-USASP2015075824

PATIENT
  Age: 77 Year
  Sex: Female

DRUGS (1)
  1. ENBREL [Suspect]
     Active Substance: ETANERCEPT
     Indication: PSORIASIS
     Dosage: UNK
     Route: 065
     Dates: start: 2013

REACTIONS (4)
  - Device issue [Unknown]
  - Drug dose omission [Unknown]
  - Arthralgia [Unknown]
  - Device difficult to use [Unknown]

NARRATIVE: CASE EVENT DATE: 201508
